FAERS Safety Report 19084011 (Version 3)
Quarter: 2021Q2

REPORT INFORMATION
  Report Type: Report from Study
  Country: KR (occurrence: KR)
  Receive Date: 20210401
  Receipt Date: 20210513
  Transmission Date: 20210717
  Serious: Yes (Other)
  Sender: FDA-Public Use
  Company Number: NVSC2021KR074261

PATIENT
  Age: 31 Year
  Sex: Male
  Weight: 64.9 kg

DRUGS (1)
  1. FYTAREX [Suspect]
     Active Substance: FINGOLIMOD
     Indication: MULTIPLE SCLEROSIS
     Dosage: 0.5 MG, QD
     Route: 048
     Dates: start: 20200323

REACTIONS (3)
  - Erectile dysfunction [Recovered/Resolved]
  - Lymphopenia [Not Recovered/Not Resolved]
  - Dizziness [Recovering/Resolving]

NARRATIVE: CASE EVENT DATE: 20200413
